FAERS Safety Report 4263812-3 (Version None)
Quarter: 2004Q1

REPORT INFORMATION
  Report Type: 
  Country: None (occurrence: None)
  Receive Date: 20040105
  Receipt Date: 20040105
  Transmission Date: 20041129
  Serious: Yes (Other)
  Sender: FDA-Public Use
  Company Number: None

PATIENT
  Sex: Female
  Weight: 83.9154 kg

DRUGS (2)
  1. PAXIL [Suspect]
     Indication: DEPRESSION
     Dosage: 60 MG ORAL @ NIGHT; A TOTAL OF 15 YRS ON SSRI
     Route: 048
  2. WELLBUTRIN [Suspect]
     Dosage: 300 MG, SSRI

REACTIONS (7)
  - AGITATION [None]
  - ANGER [None]
  - DRUG WITHDRAWAL SYNDROME [None]
  - EMOTIONAL DISTRESS [None]
  - FEAR [None]
  - FEELING ABNORMAL [None]
  - MALAISE [None]
